FAERS Safety Report 24914939 (Version 2)
Quarter: 2025Q2

REPORT INFORMATION
  Report Type: Report from Study
  Country: CA (occurrence: CA)
  Receive Date: 20250203
  Receipt Date: 20250404
  Transmission Date: 20250716
  Serious: Yes (Hospitalization, Other)
  Sender: CSL BEHRING
  Company Number: CA-BEH-2025192114

PATIENT
  Age: 60 Year
  Sex: Male
  Weight: 74 kg

DRUGS (11)
  1. HIZENTRA [Suspect]
     Active Substance: HUMAN IMMUNOGLOBULIN G
     Indication: Secondary immunodeficiency
     Route: 065
     Dates: start: 20241107
  2. HIZENTRA [Suspect]
     Active Substance: HUMAN IMMUNOGLOBULIN G
     Dosage: 8 G, QW
     Route: 065
     Dates: start: 20241222
  3. HIZENTRA [Suspect]
     Active Substance: HUMAN IMMUNOGLOBULIN G
     Dosage: UNK UNK, QW
     Route: 065
     Dates: start: 20241222
  4. HIZENTRA [Suspect]
     Active Substance: HUMAN IMMUNOGLOBULIN G
     Dosage: UNK, QW
     Route: 065
     Dates: start: 20250327
  5. OLARATUMAB [Concomitant]
     Active Substance: OLARATUMAB
  6. ARANESP [Concomitant]
     Active Substance: DARBEPOETIN ALFA
  7. B12 [Concomitant]
  8. SULFATRIM [Concomitant]
     Active Substance: SULFAMETHOXAZOLE\TRIMETHOPRIM
  9. LEVOFLOXACIN [Concomitant]
     Active Substance: LEVOFLOXACIN
  10. VALACYCLOVIR [Concomitant]
     Active Substance: VALACYCLOVIR HYDROCHLORIDE
  11. METOCLOPRAMIDE [Concomitant]
     Active Substance: METOCLOPRAMIDE

REACTIONS (4)
  - Plasma cell myeloma [Unknown]
  - Drug ineffective [Unknown]
  - Hospitalisation [Unknown]
  - Injection site swelling [Unknown]

NARRATIVE: CASE EVENT DATE: 20241107
